FAERS Safety Report 9160443 (Version 1)
Quarter: 2013Q1

REPORT INFORMATION
  Report Type: Spontaneous
  Country: GB (occurrence: None)
  Receive Date: 20130215
  Receipt Date: 20130215
  Transmission Date: 20140127
  Serious: Yes (Disabling)
  Sender: FDA-Public Use
  Company Number: AUR-APL-2013-01292

PATIENT
  Age: 34 Year
  Sex: Female
  Weight: 57.15 kg

DRUGS (3)
  1. GABAPENTIN (GABAPENTIN) [Suspect]
     Indication: NEURALGIA
     Dosage: 300 MG, 3 IN 1 D
     Route: 048
     Dates: start: 20120830
  2. LORATIDINE [Concomitant]
  3. ST JOHNS WORT (HYPERICUM PERFORATUM) [Concomitant]

REACTIONS (4)
  - Hypoaesthesia oral [None]
  - Disturbance in attention [None]
  - Feeling drunk [None]
  - Constipation [None]
